FAERS Safety Report 13196548 (Version 1)
Quarter: 2017Q1

REPORT INFORMATION
  Report Type: Report from Study
  Country: US (occurrence: US)
  Receive Date: 20170208
  Receipt Date: 20170208
  Transmission Date: 20170428
  Serious: Yes (Death)
  Sender: FDA-Public Use
  Company Number: US-PFIZER INC-2017052281

PATIENT
  Age: 79 Year
  Sex: Female

DRUGS (1)
  1. SUTENT [Suspect]
     Active Substance: SUNITINIB MALATE
     Indication: ILL-DEFINED DISORDER
     Dosage: 50 MG, DAILY
     Route: 048
     Dates: start: 20130221, end: 20161024

REACTIONS (2)
  - Neoplasm progression [Unknown]
  - Death [Fatal]

NARRATIVE: CASE EVENT DATE: 20161024
